FAERS Safety Report 9184424 (Version 1)
Quarter: 2012Q4

REPORT INFORMATION
  Report Type: 
  Country: US (occurrence: US)
  Receive Date: 20121031
  Receipt Date: 20121031
  Transmission Date: 20130627
  Serious: No
  Sender: FDA-Public Use
  Company Number: US-B.I. PHARMACEUTICALS,INC./RIDGEFIELD-2012-BP-26739BP

PATIENT
  Age: 84 None
  Sex: Male
  Weight: 75 kg

DRUGS (2)
  1. SPIRIVA [Suspect]
     Indication: WHEEZING
     Dosage: 18 mcg
     Route: 055
     Dates: start: 2009
  2. SPIRIVA [Suspect]
     Route: 048
     Dates: start: 20121024, end: 20121024

REACTIONS (3)
  - Asthenia [Not Recovered/Not Resolved]
  - Productive cough [Not Recovered/Not Resolved]
  - Incorrect route of drug administration [Recovered/Resolved]
